FAERS Safety Report 10171747 (Version 1)
Quarter: 2014Q2

REPORT INFORMATION
  Report Type: Spontaneous
  Country: US (occurrence: None)
  Receive Date: 20140428
  Receipt Date: 20140428
  Transmission Date: 20141212
  Serious: Yes (Other)
  Sender: FDA-Public Use
  Company Number: PHEH2013US006074

PATIENT
  Age: 54 Year
  Sex: Female

DRUGS (11)
  1. LOTREL [Suspect]
     Dates: start: 2001, end: 200208
  2. VITAMIN B 12 [Concomitant]
  3. EFFEXOR XR (VENLAFAXINE HYDROCHLORIDE) (75 MILLIGRAM, CAPSULE) (VENLAFAXINE HYDROCHLORIDE) [Concomitant]
  4. FOLBEE [Concomitant]
  5. MIRAPEX (PRAMIPEXOLE DIHYDROCHLORIDE) [Concomitant]
  6. OMEPRAZOLE (OMEPRAZOLE) [Concomitant]
  7. PLAVIX [Concomitant]
  8. SEROQUEL (QUETIAPINE FUMARATE) [Concomitant]
  9. VITAMIN D3 (COLECALCIFEROL) [Concomitant]
  10. NORCO [Concomitant]
  11. OXYGEN (OXYGEN) [Concomitant]

REACTIONS (4)
  - Hypersensitivity [None]
  - Pharyngeal oedema [None]
  - Lip swelling [None]
  - Swollen tongue [None]
